FAERS Safety Report 23626769 (Version 1)
Quarter: 2024Q1

REPORT INFORMATION
  Report Type: Spontaneous
  Country: US (occurrence: None)
  Receive Date: 20240312
  Receipt Date: 20240312
  Transmission Date: 20240409
  Serious: Yes (Hospitalization)
  Sender: FDA-Public Use
  Company Number: None

PATIENT
  Age: 84 Year
  Sex: Male

DRUGS (1)
  1. VYNDAMAX [Suspect]
     Active Substance: TAFAMIDIS
     Indication: Amyloidosis
     Dosage: FREQUENCY : DAILY;?
     Route: 048

REACTIONS (8)
  - Therapy interrupted [None]
  - Insurance issue [None]
  - Chromaturia [None]
  - Micturition urgency [None]
  - COVID-19 [None]
  - Fatigue [None]
  - Wheezing [None]
  - Dyspnoea [None]
